FAERS Safety Report 8954187 (Version 1)
Quarter: 2012Q4

REPORT INFORMATION
  Report Type: 
  Country: DE (occurrence: DE)
  Receive Date: 20121207
  Receipt Date: 20121207
  Transmission Date: 20130627
  Serious: Yes (Disabling)
  Sender: FDA-Public Use
  Company Number: DE-SANOFI-AVENTIS-2012SA087023

PATIENT
  Sex: Female
  Weight: 53 kg

DRUGS (2)
  1. FERRLECIT [Suspect]
     Indication: IRON DEFICIENCY
     Dosage: every 1-2 months
     Route: 051
     Dates: start: 2007, end: 201209
  2. FERRLECIT [Suspect]
     Indication: IRON DEFICIENCY
     Dosage: every 2-3 months
     Route: 051
     Dates: start: 201209

REACTIONS (5)
  - Tendon disorder [Not Recovered/Not Resolved]
  - Tendon pain [Not Recovered/Not Resolved]
  - Muscle disorder [Not Recovered/Not Resolved]
  - Myalgia [Not Recovered/Not Resolved]
  - Arthropathy [Not Recovered/Not Resolved]
